FAERS Safety Report 20698562 (Version 1)
Quarter: 2022Q2

REPORT INFORMATION
  Report Type: Spontaneous
  Country: US (occurrence: US)
  Receive Date: 20220412
  Receipt Date: 20220412
  Transmission Date: 20220721
  Serious: Yes (Other)
  Sender: FDA-Public Use
  Company Number: US-BION-010078

PATIENT
  Age: 83 Year
  Sex: Female

DRUGS (1)
  1. ALEVE [Suspect]
     Active Substance: NAPROXEN SODIUM
     Indication: Pain
     Dosage: 1 LIQUID GEL A DAY WITH FOOD
     Route: 048

REACTIONS (3)
  - Food poisoning [Recovering/Resolving]
  - Haematemesis [Recovering/Resolving]
  - Incorrect product administration duration [Not Recovered/Not Resolved]
